FAERS Safety Report 7651852-3 (Version None)
Quarter: 2011Q3

REPORT INFORMATION
  Report Type: 
  Country: None (occurrence: None)
  Receive Date: 20110803
  Receipt Date: 20110726
  Transmission Date: 20111222
  Serious: Yes (Hospitalization)
  Sender: FDA-Public Use
  Company Number: US-BIOGENIDEC-2010BI044309

PATIENT
  Age: 64 Year
  Sex: Female
  Weight: 91 kg

DRUGS (3)
  1. MEDICATION (NOS) [Concomitant]
  2. AVONEX [Suspect]
     Dosage: DOSE UNIT:30
     Route: 030
     Dates: start: 19970110, end: 20100521
  3. AVONEX [Suspect]
     Indication: MULTIPLE SCLEROSIS
     Route: 030
     Dates: start: 20100710

REACTIONS (2)
  - CORONARY ARTERY DISEASE [None]
  - SOMNOLENCE [None]
